FAERS Safety Report 6402989-8 (Version None)
Quarter: 2009Q4

REPORT INFORMATION
  Report Type: 
  Country: None (occurrence: None)
  Receive Date: 20091013
  Receipt Date: 20090825
  Transmission Date: 20100525
  Serious: No
  Sender: FDA-Public Use
  Company Number: 2009BM000214

PATIENT
  Age: 21 Year
  Sex: Female
  Weight: 104 kg

DRUGS (3)
  1. KUVAN [Suspect]
     Indication: PHENYLKETONURIA
     Dosage: 200 MG;QD;PO
     Route: 048
     Dates: start: 20090701, end: 20090101
  2. KUVAN [Suspect]
     Indication: PHENYLKETONURIA
     Dosage: 200 MG;QD;PO
     Route: 048
     Dates: start: 20090101
  3. CARNITOR [Concomitant]

REACTIONS (4)
  - DECREASED APPETITE [None]
  - FEELING ABNORMAL [None]
  - MENSTRUAL DISCOMFORT [None]
  - NAUSEA [None]
